FAERS Safety Report 5591295-X (Version None)
Quarter: 2008Q1

REPORT INFORMATION
  Report Type: 
  Country: None (occurrence: None)
  Receive Date: 20080110
  Receipt Date: 20080110
  Transmission Date: 20080703
  Serious: Yes (Other)
  Sender: FDA-Public Use
  Company Number: None

PATIENT
  Age: 65 Year
  Sex: Female
  Weight: 62.5964 kg

DRUGS (3)
  1. HYDROCODONE BITARTRATE + ACETAMINOPHEN [Suspect]
     Indication: PAIN
     Dosage: ONE   6 HOURS/4 PER DAY  PO
     Route: 048
     Dates: start: 20071201, end: 20071231
  2. HYDROCODONE BITARTRATE + ACETAMINOPHEN [Suspect]
     Indication: PROCEDURAL PAIN
     Dosage: ONE   6 HOURS/4 PER DAY  PO
     Route: 048
     Dates: start: 20071201, end: 20071231
  3. HYDROCODONE BITARTRATE + ACETAMINOPHEN [Suspect]
     Indication: SPINAL CORD INJURY
     Dosage: ONE   6 HOURS/4 PER DAY  PO
     Route: 048
     Dates: start: 20071201, end: 20071231

REACTIONS (3)
  - CONDITION AGGRAVATED [None]
  - DRUG INEFFECTIVE [None]
  - PAIN [None]
